FAERS Safety Report 7530708-0 (Version None)
Quarter: 2011Q2

REPORT INFORMATION
  Report Type: 
  Country: None (occurrence: None)
  Receive Date: 20110607
  Receipt Date: 20110531
  Transmission Date: 20111010
  Serious: Yes (Other)
  Sender: FDA-Public Use
  Company Number: US-US-EMD SERONO, INC.-7062846

PATIENT

DRUGS (1)
  1. SEROSTIM [Suspect]
     Indication: CACHEXIA

REACTIONS (2)
  - SKIN CANCER [None]
  - RENAL CANCER [None]
